FAERS Safety Report 7574486-8 (Version None)
Quarter: 2011Q2

REPORT INFORMATION
  Report Type: 
  Country: None (occurrence: None)
  Receive Date: 20110627
  Receipt Date: 20110615
  Transmission Date: 20111010
  Serious: Yes (Hospitalization, Other)
  Sender: FDA-Public Use
  Company Number: US-BAYER-201032444NA

PATIENT
  Age: 21 Year
  Sex: Female
  Weight: 145 kg

DRUGS (1)
  1. YAZ [Suspect]
     Indication: ORAL CONTRACEPTION
     Dosage: UNK UNK, UNK
     Route: 065
     Dates: start: 20030101, end: 20100101

REACTIONS (6)
  - CHOLELITHIASIS [None]
  - PULMONARY EMBOLISM [None]
  - PAIN [None]
  - GALLBLADDER DISORDER [None]
  - DEEP VEIN THROMBOSIS [None]
  - BILIARY COLIC [None]
